FAERS Safety Report 18791875 (Version 1)
Quarter: 2021Q1

REPORT INFORMATION
  Report Type: Spontaneous
  Country: CA (occurrence: CA)
  Receive Date: 20210127
  Receipt Date: 20210127
  Transmission Date: 20210419
  Serious: Yes (Other)
  Sender: FDA-Public Use
  Company Number: CA-JNJFOC-20210134929

PATIENT
  Age: 27 Year
  Sex: Female

DRUGS (10)
  1. REMICADE [Suspect]
     Active Substance: INFLIXIMAB
     Indication: COLITIS ULCERATIVE
  2. PREDNISONE. [Concomitant]
     Active Substance: PREDNISONE
     Route: 065
  3. INFLIXIMAB [Suspect]
     Active Substance: INFLIXIMAB
     Indication: PSORIATIC ARTHROPATHY
     Route: 042
  4. INFLIXIMAB [Suspect]
     Active Substance: INFLIXIMAB
     Indication: COLITIS ULCERATIVE
  5. MEZAVANT [Concomitant]
     Active Substance: MESALAMINE
     Route: 065
  6. PENTASA [Concomitant]
     Active Substance: MESALAMINE
     Route: 054
  7. REMICADE [Suspect]
     Active Substance: INFLIXIMAB
     Indication: PSORIATIC ARTHROPATHY
     Route: 042
  8. MESALAZINE [Concomitant]
     Active Substance: MESALAMINE
  9. PENTASA [Concomitant]
     Active Substance: MESALAMINE
     Route: 048
  10. PREDNISONE. [Concomitant]
     Active Substance: PREDNISONE
     Route: 065

REACTIONS (9)
  - Inappropriate schedule of product administration [Recovered/Resolved]
  - Blood test abnormal [Recovered/Resolved]
  - Heart rate increased [Recovered/Resolved]
  - Drug level decreased [Recovered/Resolved]
  - Off label use [Recovered/Resolved]
  - Weight increased [Recovered/Resolved]
  - Arthralgia [Recovered/Resolved]
  - Inflammatory bowel disease [Recovered/Resolved]
  - Migraine [Recovered/Resolved]
